FAERS Safety Report 20110079 (Version 4)
Quarter: 2022Q4

REPORT INFORMATION
  Report Type: Report from Study
  Country: KR (occurrence: KR)
  Receive Date: 20211124
  Receipt Date: 20221128
  Transmission Date: 20230113
  Serious: Yes (Hospitalization)
  Sender: FDA-Public Use
  Company Number: KR-BAYER-2021A238347

PATIENT
  Age: 55 Year
  Sex: Female
  Weight: 44.4 kg

DRUGS (10)
  1. REGORAFENIB [Suspect]
     Active Substance: REGORAFENIB
     Indication: Squamous cell carcinoma of head and neck
     Dosage: 90 MG
     Route: 048
     Dates: start: 20211001, end: 20211017
  2. REGORAFENIB [Suspect]
     Active Substance: REGORAFENIB
     Indication: Squamous cell carcinoma of head and neck
     Dosage: 90 MG
     Route: 048
     Dates: start: 20211112, end: 20211118
  3. REGORAFENIB [Suspect]
     Active Substance: REGORAFENIB
     Indication: Squamous cell carcinoma of head and neck
     Dosage: 90 MG
     Route: 048
     Dates: start: 20211126, end: 20211216
  4. REGORAFENIB [Suspect]
     Active Substance: REGORAFENIB
     Indication: Squamous cell carcinoma of head and neck
     Dosage: 90 MG
     Route: 048
     Dates: start: 20211224, end: 20220113
  5. REGORAFENIB [Suspect]
     Active Substance: REGORAFENIB
     Indication: Squamous cell carcinoma of head and neck
     Dosage: 90 MG
     Route: 048
     Dates: start: 20220121, end: 20220127
  6. REGORAFENIB [Suspect]
     Active Substance: REGORAFENIB
     Indication: Squamous cell carcinoma of head and neck
     Dosage: UNK
  7. NIVOLUMAB [Suspect]
     Active Substance: NIVOLUMAB
     Indication: Squamous cell carcinoma of head and neck
     Dosage: 480 MG
     Route: 042
     Dates: start: 20211001, end: 20211001
  8. NIVOLUMAB [Suspect]
     Active Substance: NIVOLUMAB
     Indication: Squamous cell carcinoma of head and neck
     Dosage: 480 MG
     Route: 042
     Dates: start: 20211126, end: 20211126
  9. NIVOLUMAB [Suspect]
     Active Substance: NIVOLUMAB
     Indication: Squamous cell carcinoma of head and neck
     Dosage: 480 MG
     Route: 042
     Dates: start: 20211224, end: 20211224
  10. NIVOLUMAB [Suspect]
     Active Substance: NIVOLUMAB
     Indication: Squamous cell carcinoma of head and neck
     Dosage: 480 MG
     Route: 042
     Dates: start: 20220121, end: 20220121

REACTIONS (1)
  - Pneumonia aspiration [Recovered/Resolved]

NARRATIVE: CASE EVENT DATE: 20211022
